FAERS Safety Report 8815524 (Version 1)
Quarter: 2012Q4

REPORT INFORMATION
  Report Type: 
  Country: FR (occurrence: FR)
  Receive Date: 20120928
  Receipt Date: 20120928
  Transmission Date: 20130627
  Serious: Yes (Hospitalization)
  Sender: FDA-Public Use
  Company Number: FR-TEVA-360107ISR

PATIENT
  Age: 82 Year
  Sex: Female

DRUGS (2)
  1. COTRIMOXAZOLE [Suspect]
     Indication: STAPHYLOCOCCAL INFECTION
     Dosage: 2 Dosage forms Daily;
     Route: 048
     Dates: start: 20120728, end: 20120730
  2. PREVISCAN [Concomitant]
     Indication: PULMONARY EMBOLISM
     Route: 048
     Dates: start: 1990

REACTIONS (1)
  - Purpura [Recovered/Resolved]
